FAERS Safety Report 11875136 (Version 1)
Quarter: 2015Q4

REPORT INFORMATION
  Report Type: Spontaneous
  Country: US (occurrence: None)
  Receive Date: 20151228
  Receipt Date: 20151228
  Transmission Date: 20160305
  Serious: Yes (Hospitalization)
  Sender: FDA-Public Use
  Company Number: None

PATIENT
  Age: 67 Year
  Sex: Male
  Weight: 68 kg

DRUGS (2)
  1. ATENOLOL. [Suspect]
     Active Substance: ATENOLOL
     Indication: HYPERTENSION
     Route: 048
     Dates: start: 20130812, end: 20151201
  2. NIFEDIPINE. [Suspect]
     Active Substance: NIFEDIPINE
     Indication: HYPERTENSION
     Dosage: 60 MG, AM
     Route: 048
     Dates: start: 20130812

REACTIONS (10)
  - Electrocardiogram T wave abnormal [None]
  - Myocardial ischaemia [None]
  - Hypertension [None]
  - Cardiogenic shock [None]
  - Back pain [None]
  - Infection [None]
  - Diabetes mellitus [None]
  - Toxicity to various agents [None]
  - Acute kidney injury [None]
  - Cardiac failure acute [None]

NARRATIVE: CASE EVENT DATE: 20151125
